FAERS Safety Report 9600117 (Version 2)
Quarter: 2016Q1

REPORT INFORMATION
  Report Type: Report from Study
  Country: US (occurrence: US)
  Receive Date: 20131004
  Receipt Date: 20160317
  Transmission Date: 20160526
  Serious: Yes (Hospitalization, Other)
  Sender: FDA-Public Use
  Company Number: US-AMGEN-USASP2013032850

PATIENT
  Age: 48 Year
  Sex: Female
  Weight: 77.98 kg

DRUGS (1)
  1. ENBREL [Suspect]
     Active Substance: ETANERCEPT
     Indication: RHEUMATOID ARTHRITIS
     Dosage: UNK
     Route: 058
     Dates: start: 2005

REACTIONS (3)
  - Pneumonia streptococcal [Unknown]
  - Lung abscess [Unknown]
  - Influenza [Unknown]

NARRATIVE: CASE EVENT DATE: 2008
